FAERS Safety Report 14374858 (Version 2)
Quarter: 2018Q1

REPORT INFORMATION
  Report Type: Spontaneous
  Country: DE (occurrence: DE)
  Receive Date: 20180111
  Receipt Date: 20180309
  Transmission Date: 20180509
  Serious: Yes (Hospitalization)
  Sender: FDA-Public Use
  Company Number: DE-AUROBINDO-AUR-APL-2018-001698

PATIENT
  Age: 19 Year
  Sex: Female

DRUGS (30)
  1. SOLIAN [Interacting]
     Active Substance: AMISULPRIDE
     Dosage: DAILY DOSE: 400 MG MILLIGRAM(S) EVERY DAY
     Route: 048
     Dates: start: 20110111, end: 20110117
  2. SOLIAN [Interacting]
     Active Substance: AMISULPRIDE
     Dosage: DAILY DOSE: 100 MG MILLIGRAM(S) EVERY DAY
     Route: 048
     Dates: start: 20110122, end: 20110125
  3. ABILIFY [Interacting]
     Active Substance: ARIPIPRAZOLE
     Indication: PRODUCT USED FOR UNKNOWN INDICATION
     Dosage: 5 MILLIGRAM
     Route: 048
     Dates: start: 20110112
  4. ABILIFY [Interacting]
     Active Substance: ARIPIPRAZOLE
     Dosage: 10 MILLIGRAM
     Route: 048
     Dates: start: 20110115
  5. ABILIFY [Interacting]
     Active Substance: ARIPIPRAZOLE
     Dosage: 15 MILLIGRAM
     Route: 048
     Dates: start: 20110118, end: 20110127
  6. ARIPIPRAZOLE TABLETS [Interacting]
     Active Substance: ARIPIPRAZOLE
     Dosage: UNK
     Route: 048
     Dates: start: 20110115
  7. CITALOPRAM [Interacting]
     Active Substance: CITALOPRAM HYDROBROMIDE
     Dosage: DAILY DOSE: 40 MG MILLIGRAM(S) EVERY DAY
     Route: 048
     Dates: start: 20110110, end: 20110205
  8. HALDOL [Interacting]
     Active Substance: HALOPERIDOL
     Indication: PRODUCT USED FOR UNKNOWN INDICATION
     Dosage: DAILY DOSE: 6 MG MILLIGRAM(S) EVERY DAY
     Route: 048
     Dates: start: 20101226
  9. HALDOL [Interacting]
     Active Substance: HALOPERIDOL
     Dosage: 6 MG, QD
     Route: 048
     Dates: start: 20101226
  10. LORAZEPAM. [Concomitant]
     Active Substance: LORAZEPAM
     Indication: PRODUCT USED FOR UNKNOWN INDICATION
     Dosage: 2 MILLIGRAM
     Route: 065
     Dates: start: 20101226
  11. ARIPIPRAZOLE TABLETS [Suspect]
     Active Substance: ARIPIPRAZOLE
     Indication: PRODUCT USED FOR UNKNOWN INDICATION
     Dosage: UNK
     Route: 048
     Dates: start: 20110118, end: 20110127
  12. ARIPIPRAZOLE TABLETS [Interacting]
     Active Substance: ARIPIPRAZOLE
     Dosage: UNK
     Route: 048
     Dates: start: 20110128, end: 20110204
  13. ARIPIPRAZOLE TABLETS [Interacting]
     Active Substance: ARIPIPRAZOLE
     Dosage: UNK
     Route: 048
     Dates: start: 20110205
  14. HALDOL [Interacting]
     Active Substance: HALOPERIDOL
     Dosage: DAILY DOSE: 6 MG MILLIGRAM(S) EVERY DAY
     Route: 048
     Dates: start: 20101229, end: 20110104
  15. ARIPIPRAZOLE TABLETS [Interacting]
     Active Substance: ARIPIPRAZOLE
     Dosage: UNK
     Route: 048
     Dates: start: 20110112
  16. ABILIFY [Interacting]
     Active Substance: ARIPIPRAZOLE
     Dosage: 10 MILLIGRAM
     Route: 048
     Dates: start: 20110128, end: 20110204
  17. ABILIFY [Interacting]
     Active Substance: ARIPIPRAZOLE
     Dosage: 5 MILLIGRAM
     Route: 048
     Dates: start: 20110205
  18. LORAZEPAM. [Concomitant]
     Active Substance: LORAZEPAM
     Dosage: 0.5 MILLIGRAM
     Route: 065
     Dates: start: 20110118, end: 20110121
  19. CITALOPRAM [Interacting]
     Active Substance: CITALOPRAM HYDROBROMIDE
     Dosage: DAILY DOSE: 10 MG MILLIGRAM(S) EVERY DAY
     Route: 048
     Dates: start: 20101226
  20. CITALOPRAM [Interacting]
     Active Substance: CITALOPRAM HYDROBROMIDE
     Dosage: DAILY DOSE: 20 MG MILLIGRAM(S) EVERY DAY
     Route: 048
     Dates: start: 20101229, end: 20110109
  21. SOLIAN [Interacting]
     Active Substance: AMISULPRIDE
     Dosage: DAILY DOSE: 300 MG MILLIGRAM(S) EVERY DAY
     Route: 048
     Dates: start: 20110118
  22. HALDOL [Interacting]
     Active Substance: HALOPERIDOL
     Dosage: 6 MG, QD
     Route: 048
     Dates: start: 20101229, end: 20110104
  23. CITALOPRAM [Interacting]
     Active Substance: CITALOPRAM HYDROBROMIDE
     Indication: PRODUCT USED FOR UNKNOWN INDICATION
     Dosage: UNK, QD
     Route: 048
  24. SOLIAN [Interacting]
     Active Substance: AMISULPRIDE
     Indication: PRODUCT USED FOR UNKNOWN INDICATION
     Dosage: DAILY DOSE: 100 MG MILLIGRAM(S) EVERY DAY
     Route: 048
     Dates: start: 20110104, end: 20110110
  25. SOLIAN [Interacting]
     Active Substance: AMISULPRIDE
     Dosage: DAILY DOSE: 200 MG MILLIGRAM(S) EVERY DAY
     Route: 048
     Dates: start: 20110119, end: 20110121
  26. QUETIAPIN ALUID [Concomitant]
     Dosage: 100 MILLIGRAM
     Route: 065
     Dates: start: 20110126
  27. QUETIAPIN ALUID [Concomitant]
     Indication: PRODUCT USED FOR UNKNOWN INDICATION
     Dosage: 50 MILLIGRAM
     Route: 065
     Dates: start: 20110125
  28. LORAZEPAM. [Concomitant]
     Active Substance: LORAZEPAM
     Dosage: 1.5 MILLIGRAM
     Route: 065
     Dates: start: 20101229
  29. LORAZEPAM. [Concomitant]
     Active Substance: LORAZEPAM
     Dosage: 1 MILLIGRAM
     Route: 065
     Dates: start: 20110104, end: 20110117
  30. BIPERIDEN [Concomitant]
     Active Substance: BIPERIDEN
     Indication: PRODUCT USED FOR UNKNOWN INDICATION
     Dosage: DAILY DOSE: 4 MG MILLIGRAM(S) EVERY DAY
     Route: 048
     Dates: start: 20110104, end: 20110131

REACTIONS (3)
  - Extrapyramidal disorder [Unknown]
  - Tremor [Recovering/Resolving]
  - Drug interaction [Unknown]

NARRATIVE: CASE EVENT DATE: 20110104
